FAERS Safety Report 6478326-X (Version None)
Quarter: 2009Q4

REPORT INFORMATION
  Report Type: 
  Country: None (occurrence: None)
  Receive Date: 20091207
  Receipt Date: 20091130
  Transmission Date: 20100525
  Serious: Yes (Hospitalization, Other)
  Sender: FDA-Public Use
  Company Number: US-WYE-H11686509

PATIENT
  Sex: Female
  Weight: 108.96 kg

DRUGS (6)
  1. PRISTIQ [Suspect]
     Indication: DEPRESSION
     Route: 048
     Dates: start: 20090401, end: 20091014
  2. PRISTIQ [Suspect]
     Route: 048
     Dates: start: 20091016
  3. NEURONTIN [Concomitant]
     Route: 065
  4. DIABETA [Concomitant]
     Route: 065
  5. QUINAPRIL [Concomitant]
     Dosage: UNKNOWN
     Route: 065
  6. ATENOLOL [Concomitant]
     Route: 065

REACTIONS (10)
  - ASTHENIA [None]
  - CONDITION AGGRAVATED [None]
  - DRUG WITHDRAWAL SYNDROME [None]
  - DYSSTASIA [None]
  - FAECAL INCONTINENCE [None]
  - HEADACHE [None]
  - HYPERTENSION [None]
  - MALAISE [None]
  - NEUROLOGICAL SYMPTOM [None]
  - PARAESTHESIA [None]
